FAERS Safety Report 9526260 (Version 1)
Quarter: 2013Q3

REPORT INFORMATION
  Report Type: Spontaneous
  Country: PL (occurrence: PL)
  Receive Date: 20130916
  Receipt Date: 20130916
  Transmission Date: 20140515
  Serious: Yes (Hospitalization)
  Sender: FDA-Public Use
  Company Number: PHHY2013PL098409

PATIENT
  Age: 42 Year
  Sex: Female
  Weight: 52 kg

DRUGS (14)
  1. SIMULECT [Suspect]
     Indication: LIVER TRANSPLANT
     Dosage: 20 MG, UNK
     Route: 042
     Dates: start: 20130118, end: 20130121
  2. OMEPRAZOLE [Suspect]
     Dosage: 80 MG, UNK
     Route: 048
     Dates: start: 20130119, end: 20130210
  3. TACROLIMUS [Concomitant]
     Indication: LIVER TRANSPLANT
  4. ENCORTON [Concomitant]
     Indication: LIVER TRANSPLANT
     Dosage: 15 MG, UNK
     Route: 048
     Dates: start: 20130118
  5. PROGRAF [Concomitant]
     Indication: LIVER TRANSPLANT
     Dosage: 6 MG, UNK
     Route: 048
     Dates: start: 20130118
  6. ENOXAPARIN [Concomitant]
     Indication: LIVER TRANSPLANT
     Dosage: 0.6 ML, UNK
     Route: 058
     Dates: start: 20130119
  7. BISEPTOL [Concomitant]
     Indication: LIVER TRANSPLANT
     Dosage: 480 MG, UNK
     Route: 048
     Dates: start: 20130119
  8. NYSTATIN [Concomitant]
     Indication: LIVER TRANSPLANT
     Dosage: 1500000 U, UNK
     Route: 048
     Dates: start: 20130119
  9. ALFADIOL [Concomitant]
     Indication: LIVER TRANSPLANT
     Dosage: 0.25 MCG
     Route: 048
     Dates: start: 20130119
  10. FUROSEMIDE [Concomitant]
     Indication: LIVER TRANSPLANT
     Dosage: 40 MG, UNK
     Route: 048
     Dates: start: 20130119
  11. ZEFFIX [Concomitant]
     Indication: HEPATITIS VIRAL
     Dosage: 100 MG, UNK
     Route: 048
     Dates: start: 20130119
  12. CYMEVENE [Concomitant]
     Indication: CYTOMEGALOVIRUS INFECTION
     Dosage: 250 MG, UNK
     Route: 042
     Dates: start: 20130119, end: 20130218
  13. SOLU-MEDROL [Concomitant]
     Indication: LIVER TRANSPLANT
  14. INTERLEUKIN-2 [Concomitant]

REACTIONS (1)
  - Stevens-Johnson syndrome [Recovering/Resolving]
